FAERS Safety Report 11197943 (Version 1)
Quarter: 2015Q2

REPORT INFORMATION
  Report Type: Spontaneous
  Country: US (occurrence: US)
  Receive Date: 20150617
  Receipt Date: 20150617
  Transmission Date: 20150821
  Serious: No
  Sender: FDA-Public Use
  Company Number: US-GALDERMA-US14004757

PATIENT
  Age: 33 Year
  Sex: Male

DRUGS (4)
  1. AVEENO GENTLE MOISTURIZER SPF 15 [Concomitant]
     Indication: DRY SKIN PROPHYLAXIS
     Route: 061
     Dates: start: 20141209
  2. MIRVASO [Suspect]
     Active Substance: BRIMONIDINE TARTRATE
     Indication: ROSACEA
     Dosage: 0.33%
     Route: 061
     Dates: start: 20141209, end: 20141215
  3. AMBIEN (ZOLPIDEM) [Concomitant]
     Indication: SLEEP DISORDER
     Route: 048
     Dates: start: 201410
  4. AVEENO GENTLE CLEANSER [Concomitant]
     Indication: THERAPEUTIC SKIN CARE TOPICAL
     Route: 061
     Dates: start: 20141209

REACTIONS (4)
  - Erythema [Recovered/Resolved]
  - Rebound effect [Recovered/Resolved]
  - Flushing [Recovered/Resolved]
  - Condition aggravated [Recovered/Resolved]

NARRATIVE: CASE EVENT DATE: 20141215
